FAERS Safety Report 12536822 (Version 1)
Quarter: 2016Q3

REPORT INFORMATION
  Report Type: Spontaneous
  Country: US (occurrence: US)
  Receive Date: 20160707
  Receipt Date: 20160707
  Transmission Date: 20161109
  Serious: No
  Sender: FDA-Public Use
  Company Number: US-BAXALTA-2016BLT004853

PATIENT
  Age: 62 Year

DRUGS (1)
  1. GAMMAGARD S/D [Suspect]
     Active Substance: HUMAN IMMUNOGLOBULIN G
     Indication: PRODUCT USED FOR UNKNOWN INDICATION
     Dosage: 10 G, UNK
     Route: 065

REACTIONS (4)
  - Pruritus [Unknown]
  - Headache [Unknown]
  - Bone pain [Unknown]
  - Chills [Unknown]

NARRATIVE: CASE EVENT DATE: 20160605
